FAERS Safety Report 4393210-3 (Version None)
Quarter: 2004Q3

REPORT INFORMATION
  Report Type: 
  Country: None (occurrence: None)
  Receive Date: 20040701
  Receipt Date: 20040614
  Transmission Date: 20050211
  Serious: Yes (Other)
  Sender: FDA-Public Use
  Company Number: JP-JNJFOC-20040603655

PATIENT
  Age: 45 Year
  Sex: Male

DRUGS (9)
  1. REMICADE [Suspect]
     Indication: RHEUMATOID ARTHRITIS
     Dosage: 3 MG/KG, INTRAVENOUS
     Route: 042
     Dates: start: 20040305
  2. ISONIAZID [Concomitant]
  3. RIFADIN [Concomitant]
  4. EBUTOL (ETHAMBUTOL) [Concomitant]
  5. PYDOXAL (PYRIDOXAL PHOSPHATE) [Concomitant]
  6. MEDROL [Concomitant]
  7. RHEUMATREX [Concomitant]
  8. VOLTAREN [Concomitant]
  9. SELBEX (TEPRENONE) [Concomitant]

REACTIONS (2)
  - LYMPHADENOPATHY [None]
  - PULMONARY TUBERCULOSIS [None]
